FAERS Safety Report 18527246 (Version 2)
Quarter: 2020Q4

REPORT INFORMATION
  Report Type: Spontaneous
  Country: GB (occurrence: GB)
  Receive Date: 20201120
  Receipt Date: 20201204
  Transmission Date: 20210114
  Serious: Yes (Other)
  Sender: FDA-Public Use
  Company Number: GB-PFIZER INC-2020454216

PATIENT
  Age: 65 Year
  Sex: Male
  Weight: 94 kg

DRUGS (9)
  1. PERINDOPRIL TERT-BUTYLAMINE [Concomitant]
     Active Substance: PERINDOPRIL ERBUMINE
     Dosage: 1 DF, DAILY
     Dates: start: 20120128
  2. BALNEUM [GLYCINE MAX SEED OIL] [Concomitant]
     Dosage: 1 DF, DAILY (APPLY AS DIRECTED)
     Dates: start: 20201014
  3. DERMOL [BENZALKONIUM CHLORIDE;CHLORHEXIDINE HYDROCHLORIDE;ISOPROPYL MY [Concomitant]
     Dosage: UNK (USED AS DIRECTED BY DERMATOLOGIST)
     Dates: start: 20200402
  4. TADALAFIL. [Concomitant]
     Active Substance: TADALAFIL
     Dosage: UNK (USED AS DIRECTED)
     Dates: start: 20120924
  5. MOMETASONE [Concomitant]
     Active Substance: MOMETASONE
     Dosage: 1 DF, DAILY (APPLY TO TORSO AND LIMBS AS DIRECTED)
     Route: 061
     Dates: start: 20200402
  6. METHOTREXATE SODIUM. [Suspect]
     Active Substance: METHOTREXATE SODIUM
     Dosage: 15 MG
     Dates: start: 20200402
  7. ATORVASTATIN [Concomitant]
     Active Substance: ATORVASTATIN
     Dosage: 1 DF, DAILY
     Dates: start: 20190423
  8. FEXOFENADINE [Concomitant]
     Active Substance: FEXOFENADINE HYDROCHLORIDE
     Dosage: 2 DF, DAILY
     Dates: start: 20141013
  9. FOLIC ACID. [Concomitant]
     Active Substance: FOLIC ACID
     Dosage: 1 DF, CYCLIC (DAILY EXCEPT ON METHOTREXATE ADMINISTRATION DAY)
     Dates: start: 20200520

REACTIONS (2)
  - Male sexual dysfunction [Unknown]
  - Drug ineffective [Unknown]

NARRATIVE: CASE EVENT DATE: 20200402
